FAERS Safety Report 5818824-2 (Version None)
Quarter: 2008Q3

REPORT INFORMATION
  Report Type: 
  Country: None (occurrence: None)
  Receive Date: 20080723
  Receipt Date: 20080717
  Transmission Date: 20090109
  Serious: Yes (Life-Threatening)
  Sender: FDA-Public Use
  Company Number: FR-JNJFOC-20080703994

PATIENT
  Sex: Female

DRUGS (7)
  1. REMINYL [Suspect]
     Indication: DRUG USE FOR UNKNOWN INDICATION
     Route: 048
  2. ACEBUTOLOL [Suspect]
     Indication: DRUG USE FOR UNKNOWN INDICATION
     Route: 048
  3. LERCAN [Suspect]
     Indication: DRUG USE FOR UNKNOWN INDICATION
     Route: 048
  4. SOLIAN [Suspect]
     Indication: DRUG USE FOR UNKNOWN INDICATION
     Dosage: 100MG/ML 2 DROPS
     Route: 048
  5. OMEPRAZOLE [Suspect]
     Indication: DRUG USE FOR UNKNOWN INDICATION
     Route: 048
  6. MOVICOL [Concomitant]
  7. LEPTICUR [Concomitant]

REACTIONS (6)
  - BRADYCARDIA [None]
  - DYSKINESIA [None]
  - HYPOTENSION [None]
  - HYPOTHERMIA [None]
  - HYPOTONIA [None]
  - INCORRECT DOSE ADMINISTERED [None]
